FAERS Safety Report 8220440-2 (Version None)
Quarter: 2012Q1

REPORT INFORMATION
  Report Type: 
  Country: None (occurrence: None)
  Receive Date: 20120319
  Receipt Date: 20120126
  Transmission Date: 20120608
  Serious: Yes (Other)
  Sender: FDA-Public Use
  Company Number: PHHY2012KR021586

PATIENT
  Sex: Male
  Weight: 58 kg

DRUGS (2)
  1. EXJADE [Suspect]
     Indication: APLASTIC ANAEMIA
  2. EXJADE [Suspect]
     Indication: IRON OVERLOAD
     Dosage: 125 MG
     Route: 048
     Dates: start: 20090626

REACTIONS (4)
  - RENAL FUNCTION TEST ABNORMAL [None]
  - HAEMOGLOBIN DECREASED [None]
  - BLOOD IRON ABNORMAL [None]
  - PLATELET COUNT DECREASED [None]
